FAERS Safety Report 4981715-3 (Version None)
Quarter: 2006Q2

REPORT INFORMATION
  Report Type: 
  Country: None (occurrence: None)
  Receive Date: 20060421
  Receipt Date: 20060411
  Transmission Date: 20061013
  Serious: Yes (Other)
  Sender: FDA-Public Use
  Company Number: 2006052018

PATIENT
  Age: 60 Year
  Sex: Female

DRUGS (4)
  1. MEDROXYPROGESTERONE ACETATE [Suspect]
     Indication: HORMONE REPLACEMENT THERAPY
     Dosage: ORAL
     Route: 048
     Dates: start: 19960101, end: 19990101
  2. MEDROXYPROGESTERONE [Suspect]
     Indication: HORMONE REPLACEMENT THERAPY
     Dates: start: 19960101, end: 19990101
  3. CYCRIN [Suspect]
     Indication: HORMONE REPLACEMENT THERAPY
     Dates: start: 19960101, end: 19990101
  4. PREMARIC (ESTROGENS CONJUGATED) [Suspect]
     Indication: HORMONE REPLACEMENT THERAPY
     Dates: start: 19960101, end: 19990101

REACTIONS (3)
  - BREAST CANCER FEMALE [None]
  - BREAST CANCER IN SITU [None]
  - OESTROGEN RECEPTOR ASSAY POSITIVE [None]
